FAERS Safety Report 5779688-9 (Version None)
Quarter: 2008Q2

REPORT INFORMATION
  Report Type: 
  Country: None (occurrence: None)
  Receive Date: 20080619
  Receipt Date: 20080610
  Transmission Date: 20081010
  Serious: Yes (Hospitalization)
  Sender: FDA-Public Use
  Company Number: JP-MERCK-0806USA02281

PATIENT
  Age: 36 Month
  Sex: Male

DRUGS (3)
  1. SINGULAIR [Suspect]
     Indication: ASTHMA
     Route: 048
     Dates: start: 20080606, end: 20080609
  2. MUCODYNE [Concomitant]
     Indication: ASTHMA
     Route: 048
     Dates: start: 20080606, end: 20080609
  3. HOKUNALIN [Concomitant]
     Indication: ASTHMA
     Route: 061
     Dates: start: 20080606, end: 20080609

REACTIONS (3)
  - BLOOD GLUCOSE INCREASED [None]
  - GLUCOSE URINE PRESENT [None]
  - VOMITING [None]
